FAERS Safety Report 19019399 (Version 1)
Quarter: 2021Q1

REPORT INFORMATION
  Report Type: Spontaneous
  Country: CN (occurrence: CN)
  Receive Date: 20210317
  Receipt Date: 20210317
  Transmission Date: 20210420
  Serious: Yes (Other)
  Sender: FDA-Public Use
  Company Number: CN-ROCHE-2786495

PATIENT
  Sex: Female
  Weight: 40 kg

DRUGS (4)
  1. HERCEPTIN [Suspect]
     Active Substance: TRASTUZUMAB
     Route: 041
     Dates: start: 202102
  2. PERJETA [Suspect]
     Active Substance: PERTUZUMAB
     Indication: BREAST CANCER
     Dosage: DF=VIALS
     Route: 041
     Dates: start: 202102
  3. HERCEPTIN [Suspect]
     Active Substance: TRASTUZUMAB
     Indication: BREAST CANCER
     Route: 041
     Dates: start: 202006, end: 2020
  4. PACLITAXEL. [Concomitant]
     Active Substance: PACLITAXEL
     Indication: BREAST CANCER
     Dates: start: 202102

REACTIONS (3)
  - Infusion related reaction [Recovered/Resolved]
  - Pneumonitis [Unknown]
  - Immune-mediated hepatitis [Unknown]

NARRATIVE: CASE EVENT DATE: 2021
